FAERS Safety Report 5444498-9 (Version None)
Quarter: 2007Q3

REPORT INFORMATION
  Report Type: 
  Country: None (occurrence: None)
  Receive Date: 20070828
  Receipt Date: 20070820
  Transmission Date: 20080115
  Serious: Yes (Death)
  Sender: FDA-Public Use
  Company Number: 2007329227

PATIENT
  Age: 18 Month
  Sex: Male
  Weight: 14.1522 kg

DRUGS (1)
  1. BENADRYL [Suspect]
     Indication: HYPERSENSITIVITY
     Dosage: 1 TEASPOON TWICE, ORAL
     Route: 048
     Dates: start: 20070103, end: 20070104

REACTIONS (3)
  - ASPHYXIA [None]
  - DRUG TOXICITY [None]
  - SOMNOLENCE [None]
